FAERS Safety Report 5076403-1 (Version None)
Quarter: 2006Q3

REPORT INFORMATION
  Report Type: 
  Country: None (occurrence: None)
  Receive Date: 20060728
  Receipt Date: 20060425
  Transmission Date: 20061208
  Serious: Yes (Other)
  Sender: FDA-Public Use
  Company Number: US200604004104

PATIENT
  Age: 10 Year
  Sex: Female
  Weight: 52.2 kg

DRUGS (1)
  1. STRATTERA [Suspect]
     Dosage: 85 MG
     Dates: start: 20060101, end: 20060401

REACTIONS (2)
  - PRESCRIBED OVERDOSE [None]
  - SUICIDAL IDEATION [None]
